FAERS Safety Report 17093898 (Version 5)
Quarter: 2020Q1

REPORT INFORMATION
  Report Type: Report from Study
  Country: FR (occurrence: FR)
  Receive Date: 20191129
  Receipt Date: 20200317
  Transmission Date: 20200409
  Serious: Yes (Hospitalization, Other)
  Sender: FDA-Public Use
  Company Number: FR-TAKEDA-2018MPI015051

PATIENT
  Sex: Female
  Weight: 95 kg

DRUGS (7)
  1. REVLIMID [Suspect]
     Active Substance: LENALIDOMIDE
     Dosage: 15 MILLIGRAM
     Route: 048
     Dates: end: 20190727
  2. IXAZOMIB [Suspect]
     Active Substance: IXAZOMIB
     Indication: PLASMA CELL MYELOMA
     Dosage: UNK
     Route: 065
     Dates: start: 20180711
  3. SMECTA [Concomitant]
     Active Substance: MONTMORILLONITE
     Indication: DIARRHOEA
     Dosage: UNK
     Route: 048
     Dates: start: 20190802
  4. REVLIMID [Suspect]
     Active Substance: LENALIDOMIDE
     Indication: PLASMA CELL MYELOMA
     Dosage: 25 MILLIGRAM
     Route: 048
     Dates: start: 20180711
  5. DEXAMETHASONE. [Suspect]
     Active Substance: DEXAMETHASONE
     Indication: PRODUCT USED FOR UNKNOWN INDICATION
     Dosage: 40 MILLIGRAM, 1/WEEK
     Route: 065
  6. ELIQUIS [Concomitant]
     Active Substance: APIXABAN
     Dosage: UNK
     Route: 065
  7. VIBRAMYCINE [Concomitant]
     Indication: BRONCHITIS
     Dosage: 100 MILLIGRAM, BID
     Route: 048
     Dates: start: 20190812

REACTIONS (12)
  - Weight decreased [Unknown]
  - Anaemia [Recovered/Resolved]
  - Pain [Recovered/Resolved]
  - Neutropenia [Recovered/Resolved]
  - Diarrhoea [Recovered/Resolved]
  - Gout [Recovered/Resolved]
  - Fall [Recovered/Resolved]
  - Inflammation [Recovered/Resolved]
  - Thrombocytopenia [Recovered/Resolved]
  - Bronchitis bacterial [Recovered/Resolved]
  - Oedema [Recovered/Resolved]
  - Rhabdomyolysis [Recovered/Resolved]

NARRATIVE: CASE EVENT DATE: 20180828
